FAERS Safety Report 10621986 (Version 1)
Quarter: 2014Q4

REPORT INFORMATION
  Report Type: Spontaneous
  Country: US (occurrence: None)
  Receive Date: 20141201
  Receipt Date: 20141201
  Transmission Date: 20150529
  Serious: Yes (Other)
  Sender: FDA-Public Use
  Company Number: None

PATIENT
  Age: 57 Year
  Sex: Female
  Weight: 79.38 kg

DRUGS (1)
  1. CYCLOPENTOLATE [Suspect]
     Active Substance: CYCLOPENTOLATE
     Indication: OPHTHALMOLOGICAL EXAMINATION
     Dosage: 3 DROPS IN EACH EYE, INTO EYE
     Dates: start: 20141025, end: 20141029

REACTIONS (11)
  - Photosensitivity reaction [None]
  - Disorientation [None]
  - Eyelid oedema [None]
  - Vision blurred [None]
  - Confusional state [None]
  - Clumsiness [None]
  - Ocular discomfort [None]
  - Eye pain [None]
  - Coordination abnormal [None]
  - Blepharitis [None]
  - Dry eye [None]

NARRATIVE: CASE EVENT DATE: 20141025
